FAERS Safety Report 10206280 (Version 2)
Quarter: 2014Q2

REPORT INFORMATION
  Report Type: Spontaneous
  Country: IN (occurrence: IN)
  Receive Date: 20140530
  Receipt Date: 20140623
  Transmission Date: 20141212
  Serious: Yes (Other)
  Sender: FDA-Public Use
  Company Number: IN-JNJFOC-20140514739

PATIENT
  Age: 31 Year
  Sex: Male

DRUGS (1)
  1. REMICADE [Suspect]
     Indication: PRODUCT USED FOR UNKNOWN INDICATION
     Route: 042

REACTIONS (5)
  - Nervous system disorder [Recovered/Resolved]
  - Hypokinesia [Recovered/Resolved]
  - Dysstasia [Recovered/Resolved]
  - Neck pain [Recovered/Resolved]
  - Movement disorder [Recovered/Resolved]
